FAERS Safety Report 12277940 (Version 2)
Quarter: 2016Q2

REPORT INFORMATION
  Report Type: Spontaneous
  Country: US (occurrence: US)
  Receive Date: 20160418
  Receipt Date: 20160418
  Transmission Date: 20160815
  Serious: Yes (Other)
  Sender: FDA-Public Use
  Company Number: US-TEVA-650251USA

PATIENT
  Sex: Male

DRUGS (1)
  1. QNASL [Suspect]
     Active Substance: BECLOMETHASONE DIPROPIONATE
     Indication: CHRONIC SINUSITIS
     Route: 045
     Dates: start: 201602

REACTIONS (12)
  - Upper-airway cough syndrome [Not Recovered/Not Resolved]
  - Mental impairment [Not Recovered/Not Resolved]
  - Malaise [Not Recovered/Not Resolved]
  - Drug intolerance [Unknown]
  - Nasal discomfort [Unknown]
  - Product use issue [Recovered/Resolved]
  - Nausea [Unknown]
  - Fatigue [Not Recovered/Not Resolved]
  - Discomfort [Unknown]
  - Product contamination [Unknown]
  - Headache [Not Recovered/Not Resolved]
  - Head discomfort [Not Recovered/Not Resolved]

NARRATIVE: CASE EVENT DATE: 201602
